FAERS Safety Report 4373473-0 (Version None)
Quarter: 2004Q1

REPORT INFORMATION
  Report Type: 
  Country: None (occurrence: None)
  Receive Date: 20040305
  Receipt Date: 20031219
  Transmission Date: 20041129
  Serious: Yes (Other)
  Sender: FDA-Public Use
  Company Number: 2003UW16993

PATIENT
  Age: 57 Year
  Sex: Male
  Weight: 95.2554 kg

DRUGS (5)
  1. CRESTOR [Suspect]
     Indication: BLOOD CHOLESTEROL INCREASED
     Dosage: 10 MG PO
     Route: 048
  2. LISINOPRIL [Concomitant]
  3. CEPHALEXIN [Concomitant]
  4. SINGULAIR [Concomitant]
  5. VICODIN [Concomitant]

REACTIONS (1)
  - HICCUPS [None]
